FAERS Safety Report 14405739 (Version 2)
Quarter: 2018Q1

REPORT INFORMATION
  Report Type: Spontaneous
  Country: FR (occurrence: FR)
  Receive Date: 20180118
  Receipt Date: 20180206
  Transmission Date: 20180509
  Serious: Yes (Hospitalization, Disabling, Other)
  Sender: FDA-Public Use
  Company Number: FR-BAYER-2018-006599

PATIENT
  Age: 67 Year
  Sex: Male

DRUGS (3)
  1. NEXAVAR [Suspect]
     Active Substance: SORAFENIB
     Indication: HEPATIC CANCER
     Dosage: 600 MG, DAILY
     Route: 048
     Dates: start: 20171016, end: 20171114
  2. NEXAVAR [Suspect]
     Active Substance: SORAFENIB
     Indication: HEPATIC CANCER
     Dosage: 400 MG DAILY
     Route: 048
     Dates: start: 20170912, end: 2017
  3. NEXAVAR [Suspect]
     Active Substance: SORAFENIB
     Indication: HEPATIC CANCER
     Dosage: 800 MG
     Route: 048
     Dates: start: 20170504

REACTIONS (10)
  - Dysuria [None]
  - Urosepsis [None]
  - Dyspnoea [Recovering/Resolving]
  - Palmar-plantar erythrodysaesthesia syndrome [None]
  - Inflammation [None]
  - Pyrexia [None]
  - Hepatic necrosis [None]
  - Pulmonary sepsis [Recovering/Resolving]
  - Productive cough [Recovering/Resolving]
  - Fistula [Not Recovered/Not Resolved]

NARRATIVE: CASE EVENT DATE: 20170818
